FAERS Safety Report 17155832 (Version 2)
Quarter: 2020Q1

REPORT INFORMATION
  Report Type: Spontaneous
  Country: US (occurrence: US)
  Receive Date: 20191215
  Receipt Date: 20200103
  Transmission Date: 20200409
  Serious: Yes (Death, Other)
  Sender: FDA-Public Use
  Company Number: US-BRISTOL-MYERS SQUIBB COMPANY-BMS-2019-118634

PATIENT
  Sex: Male
  Weight: 136.05 kg

DRUGS (1)
  1. SPRYCEL [Suspect]
     Active Substance: DASATINIB
     Indication: LEUKAEMIA
     Dosage: UNAVAILABLE
     Route: 048
     Dates: start: 201911

REACTIONS (3)
  - Post procedural complication [Unknown]
  - Cardiac disorder [Fatal]
  - Post procedural infection [Unknown]
